FAERS Safety Report 8460890-2 (Version None)
Quarter: 2012Q2

REPORT INFORMATION
  Report Type: 
  Country: None (occurrence: None)
  Receive Date: 20120625
  Receipt Date: 20120611
  Transmission Date: 20120825
  Serious: Yes (Hospitalization)
  Sender: FDA-Public Use
  Company Number: BR-AMGEN-BRASP2012037521

PATIENT
  Age: 47 Year
  Sex: Male
  Weight: 62 kg

DRUGS (7)
  1. PREDNISONE TAB [Concomitant]
     Dosage: ONCE OR TWICE DAILY
  2. OMEPRAZOLE [Concomitant]
     Dosage: 20 MG, 1X/DAY
  3. ACETAMINOPHEN [Concomitant]
     Dosage: 750 MG, 3X/DAY
  4. ENBREL [Suspect]
     Indication: RHEUMATOID ARTHRITIS
     Dosage: 2 TIMES/WK
     Route: 058
     Dates: start: 20111001
  5. ARAVA [Concomitant]
     Dosage: 20 MG, 1X/DAY
  6. CALCIUM [Concomitant]
     Dosage: 500 MG, 1X/DAY
  7. FOLIC ACID [Concomitant]
     Dosage: 5 MG, 1X/DAY

REACTIONS (2)
  - SPINAL COLUMN INJURY [None]
  - OEDEMA PERIPHERAL [None]
